FAERS Safety Report 21126836 (Version 1)
Quarter: 2022Q3

REPORT INFORMATION
  Report Type: Spontaneous
  Country: CN (occurrence: CN)
  Receive Date: 20220725
  Receipt Date: 20220725
  Transmission Date: 20221026
  Serious: Yes (Hospitalization, Disabling, Other)
  Sender: FDA-Public Use
  Company Number: CN-009507513-2207CHN006520

PATIENT
  Age: 66 Year
  Sex: Male
  Weight: 62 kg

DRUGS (3)
  1. KEYTRUDA [Suspect]
     Active Substance: PEMBROLIZUMAB
     Indication: Lung neoplasm malignant
     Dosage: D1, 100 MG, ONCE, IV DRIP, THE 2 CYCLE
     Route: 041
     Dates: start: 20220624, end: 20220624
  2. PARAPLATIN [Suspect]
     Active Substance: CARBOPLATIN
     Indication: Lung neoplasm malignant
     Dosage: D1, 400 MG, ONCE, IV DRIP, THE 2 CYCLE
     Route: 041
     Dates: start: 20220624, end: 20220624
  3. PACLITAXEL [Suspect]
     Active Substance: PACLITAXEL
     Indication: Lung neoplasm malignant
     Dosage: D1, 0.3 G, ONCE, IV DRIP, THE 2 CYCLE
     Route: 041
     Dates: start: 20220624, end: 20220624

REACTIONS (2)
  - Myelosuppression [Recovering/Resolving]
  - Underdose [Unknown]

NARRATIVE: CASE EVENT DATE: 20220701
